FAERS Safety Report 4742190-7 (Version None)
Quarter: 2005Q3

REPORT INFORMATION
  Report Type: 
  Country: None (occurrence: None)
  Receive Date: 20050811
  Receipt Date: 20050315
  Transmission Date: 20060218
  Serious: No
  Sender: FDA-Public Use
  Company Number: US-GLAXOSMITHKLINE-A0549847A

PATIENT
  Age: 54 Year
  Sex: Male
  Weight: 177.3 kg

DRUGS (9)
  1. PAXIL CR [Suspect]
     Indication: DEPRESSION
     Dosage: 25MG TWICE PER DAY
     Route: 048
     Dates: start: 20050101, end: 20050301
  2. PAXIL [Suspect]
     Indication: DEPRESSION
     Dosage: 80MG TWICE PER DAY
     Route: 048
     Dates: start: 20050301, end: 20050402
  3. NEURONTIN [Concomitant]
  4. ALBUTEROL [Concomitant]
  5. CARDIZEM [Concomitant]
  6. ASPIRIN [Concomitant]
  7. VITAMIN B COMPLEX CAP [Concomitant]
  8. ZYRTEC [Concomitant]
  9. ANTIBIOTIC [Concomitant]

REACTIONS (16)
  - CHONDROPATHY [None]
  - CRYING [None]
  - DEPRESSION [None]
  - DRUG WITHDRAWAL SYNDROME [None]
  - EAR INFECTION [None]
  - FATIGUE [None]
  - INCREASED APPETITE [None]
  - IRRITABILITY [None]
  - MEMORY IMPAIRMENT [None]
  - METABOLIC DISORDER [None]
  - NASOPHARYNGITIS [None]
  - OVERDOSE [None]
  - PAIN IN EXTREMITY [None]
  - PRODUCTIVE COUGH [None]
  - SKIN ODOUR ABNORMAL [None]
  - WEIGHT INCREASED [None]
